FAERS Safety Report 6829690-0 (Version None)
Quarter: 2010Q3

REPORT INFORMATION
  Report Type: 
  Country: None (occurrence: None)
  Receive Date: 20100709
  Receipt Date: 20070519
  Transmission Date: 20110219
  Serious: No
  Sender: FDA-Public Use
  Company Number: US-PFIZER INC-2007017757

PATIENT
  Sex: Female
  Weight: 70.3 kg

DRUGS (2)
  1. CHANTIX [Suspect]
     Indication: SMOKING CESSATION THERAPY
  2. CHANTIX [Suspect]
     Indication: TOBACCO ABUSE

REACTIONS (1)
  - GASTROINTESTINAL DISORDER [None]
